FAERS Safety Report 9160488 (Version 1)
Quarter: 2013Q1

REPORT INFORMATION
  Report Type: Spontaneous
  Country: DE (occurrence: None)
  Receive Date: 20130215
  Receipt Date: 20130215
  Transmission Date: 20140127
  Serious: Yes (Hospitalization)
  Sender: FDA-Public Use
  Company Number: 2013-0117

PATIENT
  Age: 76 Year
  Sex: Male

DRUGS (6)
  1. DYSPORT (BOTULINUM TOXIN TYPE A) (BOTULINUM TOXIN TYPE A) [Suspect]
     Dosage: 1600 UNITS (1600 UNITS, 1 IN 1 CYCLE)
     Route: 030
     Dates: start: 20130102, end: 20130102
  2. SIMVASTATIN (SIMVASTATIN) [Concomitant]
  3. PROSCAR [Concomitant]
  4. RAMIPRIL (RAMIPRIL) [Concomitant]
  5. TOREM (TORASEMIDE) [Concomitant]
  6. PANTOPRAZOLE (PANTOPRAZOLE) [Concomitant]

REACTIONS (7)
  - Muscle spasticity [None]
  - Nausea [None]
  - Diplopia [None]
  - Dyspnoea [None]
  - Muscular weakness [None]
  - Dry mouth [None]
  - Muscular weakness [None]
